FAERS Safety Report 21343176 (Version 1)
Quarter: 2022Q3

REPORT INFORMATION
  Report Type: Spontaneous
  Country: US (occurrence: None)
  Receive Date: 20220916
  Receipt Date: 20220916
  Transmission Date: 20221027
  Serious: No
  Sender: FDA-Public Use
  Company Number: None

PATIENT
  Sex: Male

DRUGS (1)
  1. CHORIONIC GONADOTROPHIN [Suspect]
     Active Substance: CHORIOGONADOTROPIN ALFA
     Indication: Testicular failure
     Dosage: OTHER QUANTITY : 500 UNITS;?FREQUENCY : TWICE A WEEK;?
     Route: 030
     Dates: start: 20220729

REACTIONS (2)
  - Intentional dose omission [None]
  - Emergency care [None]
